FAERS Safety Report 4996406-2 (Version None)
Quarter: 2006Q2

REPORT INFORMATION
  Report Type: 
  Country: None (occurrence: None)
  Receive Date: 20060505
  Receipt Date: 20060426
  Transmission Date: 20061013
  Serious: Yes (Other)
  Sender: FDA-Public Use
  Company Number: 2006057072

PATIENT
  Age: 16 Year
  Sex: Female

DRUGS (1)
  1. SERTRALINE [Suspect]
     Indication: OBSESSIVE-COMPULSIVE DISORDER
     Dosage: 100 MG, ORAL
     Route: 048
     Dates: start: 20060110, end: 20060401

REACTIONS (2)
  - INTENTIONAL SELF-INJURY [None]
  - SELF-INJURIOUS IDEATION [None]
